FAERS Safety Report 10272834 (Version 1)
Quarter: 2014Q2

REPORT INFORMATION
  Report Type: Spontaneous
  Country: US (occurrence: None)
  Receive Date: 20140630
  Receipt Date: 20140630
  Transmission Date: 20141212
  Serious: No
  Sender: FDA-Public Use
  Company Number: None

PATIENT
  Age: 51 Year
  Sex: Female
  Weight: 99.79 kg

DRUGS (4)
  1. DULOXETINE CAP 60MG CITRON PHA [Suspect]
     Indication: DEPRESSION
     Dosage: 1 CAPSULE
     Route: 048
     Dates: start: 20140614, end: 20140628
  2. ADDERALL [Concomitant]
  3. VALSARTIN HCT [Concomitant]
  4. METOPROLO ER [Concomitant]

REACTIONS (3)
  - Depression [None]
  - Somnolence [None]
  - Product substitution issue [None]
